FAERS Safety Report 4318848-0 (Version None)
Quarter: 2004Q1

REPORT INFORMATION
  Report Type: 
  Country: None (occurrence: None)
  Receive Date: 20040317
  Receipt Date: 20040317
  Transmission Date: 20041129
  Serious: Yes (Other)
  Sender: FDA-Public Use
  Company Number: None

PATIENT
  Age: 53 Year
  Sex: Male

DRUGS (2)
  1. LAMICTAL [Suspect]
     Indication: AGITATION
     Dosage: 25 MG ONE DOSE BID
  2. LAMICTAL [Suspect]
     Indication: MOOD ALTERED
     Dosage: 25 MG ONE DOSE BID

REACTIONS (1)
  - RASH [None]
